FAERS Safety Report 5234507-4 (Version None)
Quarter: 2007Q1

REPORT INFORMATION
  Report Type: 
  Country: None (occurrence: None)
  Receive Date: 20070208
  Receipt Date: 20070208
  Transmission Date: 20070707
  Serious: Yes (Hospitalization)
  Sender: FDA-Public Use
  Company Number: None

PATIENT
  Age: 80 Year
  Sex: Female

DRUGS (1)
  1. AMIODARONE HCL [Suspect]

REACTIONS (2)
  - DYSPNOEA [None]
  - NONSPECIFIC REACTION [None]
